FAERS Safety Report 5622676-3 (Version None)
Quarter: 2008Q1

REPORT INFORMATION
  Report Type: 
  Country: None (occurrence: None)
  Receive Date: 20080208
  Receipt Date: 20080208
  Transmission Date: 20080703
  Serious: Yes (Hospitalization, Other)
  Sender: FDA-Public Use
  Company Number: None

PATIENT
  Age: 55 Year
  Sex: Female

DRUGS (1)
  1. SURGICAL ABSORBABLE HEMOSTAT [Suspect]
     Indication: OPERATIVE HAEMORRHAGE
     Dates: start: 20050824

REACTIONS (10)
  - ABDOMINAL PAIN LOWER [None]
  - ABSCESS [None]
  - ADHESION [None]
  - INTESTINAL MASS [None]
  - PELVIC FLUID COLLECTION [None]
  - PHARMACEUTICAL PRODUCT COMPLAINT [None]
  - POST PROCEDURAL COMPLICATION [None]
  - PROCEDURAL PAIN [None]
  - VAGINAL ABSCESS [None]
  - VAGINAL PAIN [None]
